FAERS Safety Report 26012161 (Version 1)
Quarter: 2025Q4

REPORT INFORMATION
  Report Type: Spontaneous
  Country: JP (occurrence: JP)
  Receive Date: 20251107
  Receipt Date: 20251107
  Transmission Date: 20260118
  Serious: Yes (Other)
  Sender: MERCK SHARP & DOHME LLC
  Company Number: JP-009507513-2345989

PATIENT
  Age: 82 Year
  Sex: Male

DRUGS (3)
  1. KEYTRUDA [Suspect]
     Active Substance: PEMBROLIZUMAB
     Indication: Gallbladder cancer
  2. GEMCITABINE [Suspect]
     Active Substance: GEMCITABINE
     Indication: Gallbladder cancer
  3. CISPLATIN [Suspect]
     Active Substance: CISPLATIN
     Indication: Gallbladder cancer

REACTIONS (1)
  - Renal impairment [Unknown]
